FAERS Safety Report 21081109 (Version 1)
Quarter: 2022Q3

REPORT INFORMATION
  Report Type: Spontaneous
  Country: US (occurrence: US)
  Receive Date: 20220714
  Receipt Date: 20220714
  Transmission Date: 20221027
  Serious: No
  Sender: FDA-Public Use
  Company Number: US-AMGEN-USASP2022115959

PATIENT
  Age: 26 Year
  Sex: Male

DRUGS (2)
  1. XGEVA [Suspect]
     Active Substance: DENOSUMAB
     Indication: Bone giant cell tumour
     Dosage: 120 MILLIGRAM, QWK FOR THREE WEEKS
     Route: 058
  2. XGEVA [Suspect]
     Active Substance: DENOSUMAB
     Dosage: 120 MILLIGRAM, QMO FOR TWO MONTHS FOR A TOTAL OF THREE MONTHS
     Route: 058

REACTIONS (2)
  - Off label use [Unknown]
  - Hypocalcaemia [Recovered/Resolved]
